FAERS Safety Report 7739613-8 (Version None)
Quarter: 2011Q3

REPORT INFORMATION
  Report Type: 
  Country: None (occurrence: None)
  Receive Date: 20110909
  Receipt Date: 20110907
  Transmission Date: 20111222
  Serious: Yes (Death)
  Sender: FDA-Public Use
  Company Number: US-PFIZER INC-2011208105

PATIENT
  Sex: Female

DRUGS (2)
  1. CELEBREX [Suspect]
     Indication: ARTHRITIS
     Dosage: 200 MG, 2X/DAY
     Route: 048
     Dates: start: 20100101
  2. CARVEDILOL [Concomitant]
     Indication: BLOOD PRESSURE
     Dosage: 12.5 MG, 2X/DAY
     Route: 048

REACTIONS (2)
  - DYSPNOEA [None]
  - HYPERTENSION [None]
